FAERS Safety Report 19006938 (Version 3)
Quarter: 2021Q2

REPORT INFORMATION
  Report Type: Spontaneous
  Country: SE (occurrence: SE)
  Receive Date: 20210315
  Receipt Date: 20210623
  Transmission Date: 20210717
  Serious: Yes (Other)
  Sender: FDA-Public Use
  Company Number: SE-CELLTRION INC.-2021SE003211

PATIENT

DRUGS (3)
  1. RITUXIMAB (UNKNOWN) [Suspect]
     Active Substance: RITUXIMAB
     Indication: MULTIPLE SCLEROSIS
     Dosage: 1000 MG INITIALLY
     Route: 065
  2. PARACETAMOL [Concomitant]
     Active Substance: ACETAMINOPHEN
  3. RITUXIMAB (UNKNOWN) [Suspect]
     Active Substance: RITUXIMAB
     Dosage: FOLLOWED BY 500?1,000MG EVERY 6TH MONTH
     Route: 065

REACTIONS (4)
  - Off label use [Unknown]
  - B-lymphocyte count decreased [Unknown]
  - Drug effective for unapproved indication [Unknown]
  - Lyme disease [Recovering/Resolving]
